FAERS Safety Report 9729817 (Version 2)
Quarter: 2013Q4

REPORT INFORMATION
  Report Type: Spontaneous
  Country: US (occurrence: US)
  Receive Date: 20131204
  Receipt Date: 20131204
  Transmission Date: 20140711
  Serious: No
  Sender: FDA-Public Use
  Company Number: US-GILEAD-2009-0022591

PATIENT
  Age: 56 Year
  Sex: Female

DRUGS (8)
  1. LETAIRIS [Suspect]
     Indication: COR PULMONALE CHRONIC
     Route: 048
     Dates: start: 20090114, end: 20090716
  2. AMLODIPINE [Concomitant]
  3. DYAZIDE [Concomitant]
  4. ADVAIR [Concomitant]
  5. SINGULAIR [Concomitant]
  6. COMBIVENT [Concomitant]
  7. PREDNISONE [Concomitant]
  8. LEVOXYL [Concomitant]

REACTIONS (2)
  - Oxygen saturation abnormal [Unknown]
  - Dyspnoea [Unknown]
